FAERS Safety Report 18928236 (Version 1)
Quarter: 2021Q1

REPORT INFORMATION
  Report Type: Report from Study
  Country: US (occurrence: US)
  Receive Date: 20210223
  Receipt Date: 20210223
  Transmission Date: 20210420
  Serious: Yes (Death, Other)
  Sender: FDA-Public Use
  Company Number: US-SUN PHARMACEUTICAL INDUSTRIES LTD-2021R1-281116

PATIENT
  Age: 60 Year
  Sex: Female

DRUGS (1)
  1. AMITRIPTYLINE [Suspect]
     Active Substance: AMITRIPTYLINE
     Indication: PRODUCT USED FOR UNKNOWN INDICATION
     Dosage: UNK
     Route: 065

REACTIONS (7)
  - Asthma [Fatal]
  - Ventricular arrhythmia [Fatal]
  - Respiratory depression [Fatal]
  - Tachycardia [Fatal]
  - Hypotension [Fatal]
  - Electrocardiogram QRS complex prolonged [Fatal]
  - Acute lung injury [Fatal]
